FAERS Safety Report 25383211 (Version 1)
Quarter: 2025Q2

REPORT INFORMATION
  Report Type: Spontaneous
  Country: GR (occurrence: GR)
  Receive Date: 20250602
  Receipt Date: 20250602
  Transmission Date: 20250716
  Serious: Yes (Other)
  Sender: AMNEAL
  Company Number: GR-AMNEAL PHARMACEUTICALS-2025-AMRX-02063

PATIENT
  Age: 44 Year
  Sex: Female

DRUGS (1)
  1. TIGECYCLINE [Suspect]
     Active Substance: TIGECYCLINE
     Indication: Enterococcal infection
     Route: 042

REACTIONS (1)
  - Acute febrile neutrophilic dermatosis [Unknown]
